FAERS Safety Report 21056406 (Version 3)
Quarter: 2022Q3

REPORT INFORMATION
  Report Type: Spontaneous
  Country: US (occurrence: None)
  Receive Date: 20220708
  Receipt Date: 20220906
  Transmission Date: 20221026
  Serious: Yes (Other)
  Sender: FDA-Public Use
  Company Number: 2022A240079

PATIENT
  Age: 509 Month
  Sex: Female
  Weight: 82.7 kg

DRUGS (8)
  1. FASENRA [Suspect]
     Active Substance: BENRALIZUMAB
     Indication: Asthma
     Dosage: 30.0MG UNKNOWN
     Route: 058
     Dates: start: 202202
  2. PREDNISONE [Concomitant]
     Active Substance: PREDNISONE
     Indication: Asthma
     Dosage: TAPERED DOWN FROM 40 MG
     Route: 048
     Dates: end: 202202
  3. NP THYROID [Concomitant]
     Active Substance: LEVOTHYROXINE\LIOTHYRONINE
     Indication: Hypothyroidism
     Dosage: 60
     Route: 065
  4. DUO NEB G ALBUTEROL NEB [Concomitant]
     Indication: Asthma
     Route: 065
  5. ADVAIR HFA [Concomitant]
     Active Substance: FLUTICASONE PROPIONATE\SALMETEROL XINAFOATE
     Indication: Asthma
     Dosage: 230 THEN 115
     Route: 055
     Dates: start: 202110
  6. SODIUM CHLORIDE [Concomitant]
     Active Substance: SODIUM CHLORIDE
     Indication: Asthma
     Route: 065
  7. SPIRIVA RESPIMAT [Concomitant]
     Active Substance: TIOTROPIUM BROMIDE
     Indication: Asthma
     Dosage: 1.25
     Route: 065
  8. INTERNASAL METHYLPREDNISOLONE [Concomitant]
     Indication: Asthma
     Route: 065

REACTIONS (4)
  - Pneumonia fungal [Unknown]
  - Sinusitis fungal [Unknown]
  - Candida infection [Not Recovered/Not Resolved]
  - Oesophageal candidiasis [Not Recovered/Not Resolved]

NARRATIVE: CASE EVENT DATE: 20220401
